FAERS Safety Report 6192834-0 (Version None)
Quarter: 2009Q2

REPORT INFORMATION
  Report Type: 
  Country: None (occurrence: None)
  Receive Date: 20090518
  Receipt Date: 20090511
  Transmission Date: 20091009
  Serious: Yes (Other)
  Sender: FDA-Public Use
  Company Number: US-AVENTIS-200914090US

PATIENT
  Age: 84 Year
  Sex: Female

DRUGS (3)
  1. LANTUS [Suspect]
     Route: 058
  2. OPTICLIK (INSULIN INJECTION PEN) [Suspect]
  3. UNKNOWN DRUG [Concomitant]
     Dosage: DOSE: UNK

REACTIONS (3)
  - EXPIRED DRUG ADMINISTERED [None]
  - LOWER LIMB FRACTURE [None]
  - WOUND INFECTION [None]
